FAERS Safety Report 23594091 (Version 1)
Quarter: 2024Q1

REPORT INFORMATION
  Report Type: Report from Study
  Country: US (occurrence: US)
  Receive Date: 20240305
  Receipt Date: 20240305
  Transmission Date: 20240410
  Serious: No
  Sender: FDA-Public Use
  Company Number: US-UCBSA-2024008365

PATIENT
  Sex: Female

DRUGS (1)
  1. ROTIGOTINE [Suspect]
     Active Substance: ROTIGOTINE
     Indication: Restless legs syndrome
     Dosage: 4 MILLIGRAM (1 PATCH), ONCE DAILY (QD)
     Route: 062

REACTIONS (3)
  - Malaise [Unknown]
  - Product adhesion issue [Unknown]
  - Wrong technique in product usage process [Unknown]
